FAERS Safety Report 5106762-2 (Version None)
Quarter: 2006Q3

REPORT INFORMATION
  Report Type: 
  Country: None (occurrence: None)
  Receive Date: 20060731
  Receipt Date: 20051021
  Transmission Date: 20061208
  Serious: Yes (Death)
  Sender: FDA-Public Use
  Company Number: US-JNJFOC-20050804793

PATIENT
  Age: 80 Year
  Sex: Male

DRUGS (1)
  1. RISPERDAL [Suspect]
     Indication: ABNORMAL BEHAVIOUR
     Dosage: 2 MG, 2 IN 1 DAY, ORAL
     Route: 048

REACTIONS (1)
  - PNEUMONIA ASPIRATION [None]
